FAERS Safety Report 20245284 (Version 2)
Quarter: 2022Q1

REPORT INFORMATION
  Report Type: Report from Study
  Country: EG (occurrence: EG)
  Receive Date: 20211229
  Receipt Date: 20220106
  Transmission Date: 20220423
  Serious: Yes (Other)
  Sender: FDA-Public Use
  Company Number: EG-NOVARTISPH-NVSC2021EG294438

PATIENT
  Age: 65 Year
  Sex: Male

DRUGS (6)
  1. ENTRESTO [Suspect]
     Active Substance: SACUBITRIL\VALSARTAN
     Indication: Cardiac failure
     Dosage: 50 MG, QD
     Route: 048
     Dates: start: 201912, end: 202012
  2. ENTRESTO [Suspect]
     Active Substance: SACUBITRIL\VALSARTAN
     Dosage: 100 MG, QD
     Route: 048
     Dates: start: 202012
  3. CALCIUM D3F [Concomitant]
     Indication: Parathyroid gland operation
     Dosage: 1 DOSAGE FORM, QD (ONE OR TWO TABLETS)
     Route: 048
  4. BETACOR [Concomitant]
     Indication: Arrhythmia
     Dosage: 1 DOSAGE FORM, QD
     Route: 048
  5. BUMETANIDE [Concomitant]
     Active Substance: BUMETANIDE
     Indication: Oedema peripheral
     Dosage: 1 DOSAGE FORM, QD
     Route: 048
  6. BUMETANIDE [Concomitant]
     Active Substance: BUMETANIDE
     Dosage: 0.5 DOSAGE FORM, QD
     Route: 048

REACTIONS (6)
  - Blood uric acid increased [Unknown]
  - Lipids increased [Unknown]
  - Blood thyroid stimulating hormone increased [Unknown]
  - Burning sensation [Recovered/Resolved]
  - Product prescribing issue [Recovered/Resolved]
  - Product administration error [Not Recovered/Not Resolved]

NARRATIVE: CASE EVENT DATE: 20191201
